FAERS Safety Report 7022992-7 (Version None)
Quarter: 2010Q3

REPORT INFORMATION
  Report Type: 
  Country: None (occurrence: None)
  Receive Date: 20100930
  Receipt Date: 20100924
  Transmission Date: 20110219
  Serious: Yes (Hospitalization)
  Sender: FDA-Public Use
  Company Number: FI-BRISTOL-MYERS SQUIBB COMPANY-14848436

PATIENT
  Age: 69 Year
  Sex: Male

DRUGS (9)
  1. EFAVIRENZ TABS 600 MG [Suspect]
     Indication: HIV INFECTION
     Route: 048
     Dates: start: 20000425, end: 20090511
  2. PRAVASTATIN SODIUM [Suspect]
     Indication: HYPERLIPIDAEMIA
     Dosage: FORM: TAB.
     Route: 048
     Dates: start: 20031101, end: 20090511
  3. TELZIR [Suspect]
     Indication: HIV INFECTION
     Dosage: FORM: TAB.
     Route: 048
     Dates: start: 20041104, end: 20090511
  4. NORVIR [Suspect]
     Indication: HIV INFECTION
     Dosage: FORM: CAPS
     Route: 048
     Dates: start: 20041104, end: 20090511
  5. MAREVAN [Suspect]
     Indication: ATRIAL FIBRILLATION
     Dosage: DAILY
     Route: 048
     Dates: start: 19970101, end: 20090201
  6. VOLTAREN [Suspect]
     Indication: CONTUSION
     Dosage: FORM: GEL.
     Route: 061
     Dates: start: 20090203, end: 20090201
  7. EMCONCOR [Suspect]
     Dates: start: 20040801
  8. DIGITALIS TAB [Suspect]
     Dates: start: 19970101
  9. RALTEGRAVIR [Concomitant]
     Dates: start: 20080729

REACTIONS (3)
  - COAGULATION FACTOR DEFICIENCY [None]
  - EPISTAXIS [None]
  - MUSCLE HAEMORRHAGE [None]
